FAERS Safety Report 14207988 (Version 3)
Quarter: 2018Q1

REPORT INFORMATION
  Report Type: Spontaneous
  Country: US (occurrence: US)
  Receive Date: 20171121
  Receipt Date: 20180201
  Transmission Date: 20180508
  Serious: Yes (Hospitalization, Other)
  Sender: FDA-Public Use
  Company Number: PHEH2017US036782

PATIENT
  Age: 51 Year
  Sex: Female
  Weight: 82.6 kg

DRUGS (1)
  1. KISQALI [Suspect]
     Active Substance: RIBOCICLIB
     Indication: BREAST CANCER METASTATIC
     Dosage: 400 MG, QD
     Route: 048
     Dates: end: 20171031

REACTIONS (8)
  - Fatigue [Unknown]
  - Dyspnoea [Recovering/Resolving]
  - Pneumonitis [Recovering/Resolving]
  - Chest pain [Unknown]
  - Cough [Unknown]
  - Malaise [Unknown]
  - Pleural effusion [Unknown]
  - Chest discomfort [Unknown]

NARRATIVE: CASE EVENT DATE: 201709
